FAERS Safety Report 5834748-9 (Version None)
Quarter: 2008Q3

REPORT INFORMATION
  Report Type: 
  Country: None (occurrence: None)
  Receive Date: 20080801
  Receipt Date: 20080721
  Transmission Date: 20090109
  Serious: Yes (Hospitalization, Other)
  Sender: FDA-Public Use
  Company Number: AMAN20080009

PATIENT
  Age: 59 Year
  Sex: Female

DRUGS (3)
  1. MANTADIX (AMANTADINE) [Suspect]
     Indication: HEPATITIS C
     Dosage: 100 MG, 2 TABS DAILY
     Dates: start: 20080212, end: 20080520
  2. PEGASYS (PEG-INTERFERON ALPHA-2A) [Suspect]
     Indication: HEPATITIS C
     Dosage: 180 MCG, WEEKLY
     Dates: start: 20080212, end: 20080520
  3. REBETOL [Suspect]
     Indication: HEPATITIS C
     Dosage: 1200 MG TO 1000 MG TO 800 MG DAILY
     Dates: start: 20080212, end: 20080520

REACTIONS (2)
  - BONE MARROW FAILURE [None]
  - PANCYTOPENIA [None]
